FAERS Safety Report 8108438-6 (Version None)
Quarter: 2012Q1

REPORT INFORMATION
  Report Type: 
  Country: None (occurrence: None)
  Receive Date: 20120202
  Receipt Date: 20120130
  Transmission Date: 20120608
  Serious: Yes (Other)
  Sender: FDA-Public Use
  Company Number: PHEH2011US011087

PATIENT
  Age: 87 Year
  Sex: Female

DRUGS (5)
  1. MULTIVITAMIN [Concomitant]
  2. ACETAMINOPHEN [Suspect]
  3. METOPROLOL [Concomitant]
     Dosage: 50 MG, UNK
  4. TEKTURNA HCT [Suspect]
     Dosage: 1 DF, QD
  5. METOLAZONE [Concomitant]
     Dosage: 2.5 MG, UNK

REACTIONS (5)
  - FALL [None]
  - VOMITING [None]
  - WRIST FRACTURE [None]
  - DIPLOPIA [None]
  - HUMERUS FRACTURE [None]
